FAERS Safety Report 7170607-X (Version None)
Quarter: 2010Q4

REPORT INFORMATION
  Report Type: 
  Country: None (occurrence: None)
  Receive Date: 20101217
  Receipt Date: 20101207
  Transmission Date: 20110411
  Serious: Yes (Hospitalization, Congenital Anomaly)
  Sender: FDA-Public Use
  Company Number: A0879917A

PATIENT
  Sex: Male
  Weight: 3 kg

DRUGS (6)
  1. PAXIL [Suspect]
     Indication: DEPRESSION
     Dates: start: 20020101, end: 20030101
  2. PROZAC [Concomitant]
     Indication: DEPRESSION
     Dates: start: 20030101
  3. ATENOLOL [Concomitant]
  4. PHENERGAN [Concomitant]
  5. VICODIN [Concomitant]
     Dates: start: 20030801
  6. AMBIEN [Concomitant]
     Dates: start: 20030801

REACTIONS (10)
  - ARNOLD-CHIARI MALFORMATION [None]
  - ATRIAL SEPTAL DEFECT [None]
  - ATTENTION DEFICIT/HYPERACTIVITY DISORDER [None]
  - DEVELOPMENTAL DELAY [None]
  - DRUG EXPOSURE DURING PREGNANCY [None]
  - HEART DISEASE CONGENITAL [None]
  - MENINGITIS [None]
  - MENTAL RETARDATION [None]
  - PNEUMONIA [None]
  - WOLFF-PARKINSON-WHITE SYNDROME [None]
